FAERS Safety Report 4714518-5 (Version None)
Quarter: 2005Q3

REPORT INFORMATION
  Report Type: 
  Country: None (occurrence: None)
  Receive Date: 20050712
  Receipt Date: 20050627
  Transmission Date: 20060218
  Serious: Yes (Other)
  Sender: FDA-Public Use
  Company Number: 032-14

PATIENT
  Sex: Male

DRUGS (3)
  1. TEVETEN [Suspect]
     Indication: HYPERTENSION
     Dosage: 600 MG PO
     Route: 048
     Dates: start: 20040930, end: 20041206
  2. METFORMIN HCL [Concomitant]
  3. FENOFIBRATE [Concomitant]

REACTIONS (1)
  - URTICARIA [None]
